FAERS Safety Report 14647983 (Version 2)
Quarter: 2018Q4

REPORT INFORMATION
  Report Type: Spontaneous
  Country: US (occurrence: US)
  Receive Date: 20180316
  Receipt Date: 20181026
  Transmission Date: 20190204
  Serious: Yes (Hospitalization, Other)
  Sender: FDA-Public Use
  Company Number: US-ENDO PHARMACEUTICALS INC-2018-023070

PATIENT
  Age: 42 Year
  Sex: Male

DRUGS (2)
  1. TESTIM [Suspect]
     Active Substance: TESTOSTERONE
     Indication: ANDROGEN REPLACEMENT THERAPY
     Dosage: UNK UNKNOWN, UNKNOWN
     Route: 062
     Dates: start: 200607, end: 200707
  2. ANDROGEL [Suspect]
     Active Substance: TESTOSTERONE
     Indication: ANDROGEN REPLACEMENT THERAPY
     Dosage: UNK UNKNOWN, UNKNOWN
     Route: 065
     Dates: start: 200607, end: 200707

REACTIONS (7)
  - Leg amputation [Unknown]
  - Fasciitis [Unknown]
  - Deep vein thrombosis [Unknown]
  - Thrombosis [Unknown]
  - Enterobacter sepsis [Unknown]
  - Gangrene [Unknown]
  - Compartment syndrome [Unknown]

NARRATIVE: CASE EVENT DATE: 20070709
